FAERS Safety Report 12556416 (Version 1)
Quarter: 2016Q3

REPORT INFORMATION
  Report Type: Spontaneous
  Country: US (occurrence: US)
  Receive Date: 20160714
  Receipt Date: 20160714
  Transmission Date: 20161109
  Serious: No
  Sender: FDA-Public Use
  Company Number: US-LEO PHARMA-242973

PATIENT
  Age: 87 Year
  Sex: Male

DRUGS (1)
  1. PICATO [Suspect]
     Active Substance: INGENOL MEBUTATE
     Indication: HYPERKERATOSIS
     Route: 061
     Dates: start: 20160629, end: 20160701

REACTIONS (3)
  - Application site scab [Not Recovered/Not Resolved]
  - Product use issue [Unknown]
  - Application site vesicles [Recovered/Resolved]

NARRATIVE: CASE EVENT DATE: 20160701
